FAERS Safety Report 5308595-0 (Version None)
Quarter: 2007Q2

REPORT INFORMATION
  Report Type: 
  Country: None (occurrence: None)
  Receive Date: 20070426
  Receipt Date: 20070419
  Transmission Date: 20071010
  Serious: Yes (Death)
  Sender: FDA-Public Use
  Company Number: FR-AVENTIS-200710729FR

PATIENT
  Age: 71 Year
  Sex: Male

DRUGS (11)
  1. CLAFORAN [Suspect]
     Indication: ESCHERICHIA INFECTION
     Route: 042
     Dates: start: 20070205, end: 20070209
  2. LASILIX                            /00032601/ [Suspect]
     Dates: start: 20070127
  3. ALDACTONE [Suspect]
     Dates: start: 20070127
  4. INIPOMP                            /01263201/ [Suspect]
     Dates: start: 20070206, end: 20070211
  5. CIFLOX                             /00697201/ [Suspect]
     Route: 048
     Dates: start: 20070209, end: 20070210
  6. EFFERALGAN                         /00020001/ [Suspect]
     Route: 048
     Dates: start: 20070202, end: 20070206
  7. EFFERALGAN CODEINE [Concomitant]
     Route: 048
     Dates: start: 20070207, end: 20070209
  8. SOLUPRED                           /00016201/ [Concomitant]
     Route: 048
     Dates: start: 20070206, end: 20070211
  9. AERIUS                             /01398501/ [Concomitant]
     Route: 048
     Dates: start: 20070206, end: 20070211
  10. ATARAX                             /00058402/ [Concomitant]
     Route: 048
     Dates: start: 20070206, end: 20070209
  11. AVLOCARDYL [Concomitant]

REACTIONS (1)
  - TOXIC EPIDERMAL NECROLYSIS [None]
